FAERS Safety Report 4850585-6 (Version None)
Quarter: 2005Q4

REPORT INFORMATION
  Report Type: 
  Country: None (occurrence: None)
  Receive Date: 20051208
  Receipt Date: 20051208
  Transmission Date: 20060501
  Serious: Yes (Hospitalization)
  Sender: FDA-Public Use
  Company Number: None

PATIENT
  Age: 73 Year
  Sex: Female

DRUGS (2)
  1. FERRLECIT [Suspect]
     Indication: ANAEMIA
     Dosage: 250MG  ONE TIME ORDER Q IV DRIP
     Route: 041
     Dates: start: 20050809, end: 20050809
  2. FERRLECIT [Suspect]
     Indication: RENAL FAILURE CHRONIC
     Dosage: 250MG  ONE TIME ORDER Q IV DRIP
     Route: 041
     Dates: start: 20050809, end: 20050809

REACTIONS (5)
  - BLOOD PRESSURE DECREASED [None]
  - DIARRHOEA [None]
  - HYPERHIDROSIS [None]
  - INFUSION RELATED REACTION [None]
  - VOMITING [None]
